FAERS Safety Report 24192403 (Version 1)
Quarter: 2024Q3

REPORT INFORMATION
  Report Type: Spontaneous
  Country: US (occurrence: US)
  Receive Date: 20240809
  Receipt Date: 20240809
  Transmission Date: 20241017
  Serious: No
  Sender: ROCHE
  Company Number: US-ROCHE-10000046579

PATIENT
  Sex: Female

DRUGS (1)
  1. ERIVEDGE [Suspect]
     Active Substance: VISMODEGIB
     Indication: Basal cell carcinoma
     Dosage: FREQUENCY: 1 CAPSULE BY MOUTH ONCE DAILY FOR 2 WEEKS, THEN BREAK FOR 2 WEEKS AND REPEAT FOR 3 MONTHS
     Route: 048
     Dates: start: 202406

REACTIONS (1)
  - Skin ulcer [Unknown]
